FAERS Safety Report 7964652 (Version 2)
Quarter: 2013Q3

REPORT INFORMATION
  Report Type: Report from Study
  Country: MW (occurrence: MW)
  Receive Date: 20110527
  Receipt Date: 20130830
  Transmission Date: 20140515
  Serious: Yes (Hospitalization)
  Sender: FDA-Public Use
  Company Number: MW-ABBOTT-11P-100-0727185-00

PATIENT
  Age: 46 Year
  Sex: Male

DRUGS (2)
  1. ALUVIA TABLETS [Suspect]
     Indication: HIV INFECTION
     Route: 048
     Dates: start: 20110322, end: 20110518
  2. RALTEGRAVIR [Concomitant]
     Indication: HIV INFECTION
     Dates: start: 20110322, end: 20110518

REACTIONS (8)
  - Hiccups [Unknown]
  - Abdominal pain [Unknown]
  - Vomiting [Unknown]
  - Diarrhoea [Unknown]
  - Acute abdomen [Unknown]
  - Peritonitis [Unknown]
  - Pancreatitis [Recovered/Resolved]
  - Pneumonia bacterial [Recovered/Resolved]
